FAERS Safety Report 6028057-5 (Version None)
Quarter: 2008Q4

REPORT INFORMATION
  Report Type: 
  Country: None (occurrence: None)
  Receive Date: 20081231
  Receipt Date: 20081217
  Transmission Date: 20090506
  Serious: Yes (Death)
  Sender: FDA-Public Use
  Company Number: IDA-00165

PATIENT
  Sex: Male

DRUGS (7)
  1. PROPRANOLOL [Suspect]
     Indication: CARDIOMYOPATHY
     Dosage: PREVIOUS THERAPY - NON COMPLIANT / 1 MG ONCE / 1 MG ONCE
     Route: 042
  2. PROPRANOLOL [Suspect]
     Indication: HYPERTHYROIDISM
     Dosage: PREVIOUS THERAPY - NON COMPLIANT / 1 MG ONCE / 1 MG ONCE
     Route: 042
  3. PROPRANOLOL [Suspect]
     Indication: SINUS TACHYCARDIA
     Dosage: PREVIOUS THERAPY - NON COMPLIANT / 1 MG ONCE / 1 MG ONCE
     Route: 042
  4. CARBIMAZOLE [Concomitant]
  5. ANTIBIOTICS (ANTIBIOTICS) [Concomitant]
  6. . [Concomitant]
  7. . [Concomitant]

REACTIONS (22)
  - ABDOMINAL DISTENSION [None]
  - ABDOMINAL TENDERNESS [None]
  - ASCITES [None]
  - ASPARTATE AMINOTRANSFERASE INCREASED [None]
  - ATRIAL FIBRILLATION [None]
  - BLOOD BILIRUBIN INCREASED [None]
  - BLOOD PRESSURE DECREASED [None]
  - CARDIAC FAILURE [None]
  - CARDIAC OUTPUT DECREASED [None]
  - CARDIOMEGALY [None]
  - ECHOCARDIOGRAM ABNORMAL [None]
  - EFFUSION [None]
  - EJECTION FRACTION DECREASED [None]
  - ELECTROMECHANICAL DISSOCIATION [None]
  - GENERAL PHYSICAL HEALTH DETERIORATION [None]
  - HEART RATE DECREASED [None]
  - HEART RATE INCREASED [None]
  - HYPERTHYROIDISM [None]
  - ORTHOPNOEA [None]
  - PNEUMONIA [None]
  - PULMONARY OEDEMA [None]
  - TREATMENT NONCOMPLIANCE [None]
